FAERS Safety Report 4576488-2 (Version None)
Quarter: 2005Q1

REPORT INFORMATION
  Report Type: 
  Country: None (occurrence: None)
  Receive Date: 20050207
  Receipt Date: 20050201
  Transmission Date: 20050727
  Serious: Yes (Death)
  Sender: FDA-Public Use
  Company Number: 2005UW01779

PATIENT
  Age: 41 Year
  Sex: Female

DRUGS (3)
  1. SEROQUEL [Suspect]
     Dosage: 200 MG DAILY PO
     Route: 048
  2. PAXIL [Concomitant]
  3. CYMBALTA [Concomitant]

REACTIONS (3)
  - MEDICATION ERROR [None]
  - OVERDOSE [None]
  - SELF-MEDICATION [None]
